FAERS Safety Report 6226873-8 (Version None)
Quarter: 2009Q2

REPORT INFORMATION
  Report Type: 
  Country: None (occurrence: None)
  Receive Date: 20090612
  Receipt Date: 20090520
  Transmission Date: 20091009
  Serious: No
  Sender: FDA-Public Use
  Company Number: US-ABBOTT-09P-163-0574892-00

PATIENT
  Sex: Female
  Weight: 74.91 kg

DRUGS (4)
  1. HUMIRA [Suspect]
     Indication: RHEUMATOID ARTHRITIS
     Dates: start: 20040101, end: 20090401
  2. BONIVA [Suspect]
     Indication: OSTEOPOROSIS
     Dates: end: 20090401
  3. LIPITOR [Concomitant]
     Indication: BLOOD CHOLESTEROL
  4. BENICAR [Concomitant]
     Indication: BLOOD PRESSURE
     Dosage: 20/12.5

REACTIONS (1)
  - RENAL ATROPHY [None]
